FAERS Safety Report 5466299-8 (Version None)
Quarter: 2007Q3

REPORT INFORMATION
  Report Type: 
  Country: None (occurrence: None)
  Receive Date: 20070919
  Receipt Date: 20070904
  Transmission Date: 20080115
  Serious: Yes (Death, Hospitalization)
  Sender: FDA-Public Use
  Company Number: 17436

PATIENT
  Age: 87 Year
  Sex: Male

DRUGS (1)
  1. MIDAZOLAM HCL [Suspect]
     Indication: SEDATION
     Dosage: 3 MG TOTAL IV
     Route: 042
     Dates: start: 20070724, end: 20070724

REACTIONS (4)
  - CONDITION AGGRAVATED [None]
  - LARYNGOSPASM [None]
  - RESPIRATORY DISORDER [None]
  - STRIDOR [None]
